FAERS Safety Report 5125875-2 (Version None)
Quarter: 2006Q4

REPORT INFORMATION
  Report Type: 
  Country: None (occurrence: None)
  Receive Date: 20061012
  Receipt Date: 19980112
  Transmission Date: 20070319
  Serious: Yes (Hospitalization)
  Sender: FDA-Public Use
  Company Number: GB-GLAXOSMITHKLINE-B0052826A

PATIENT
  Age: 6 Year
  Sex: Female
  Weight: 15.36 kg

DRUGS (5)
  1. FLIXOTIDE [Suspect]
     Indication: ASTHMA
     Dosage: 1000MCG PER DAY
     Route: 055
     Dates: start: 19940101, end: 19970801
  2. ENTOCORT EC [Suspect]
     Indication: ASTHMA
     Dosage: 200MCG FOUR TIMES PER DAY
     Route: 055
  3. SALBUTAMOL [Concomitant]
     Indication: ASTHMA
     Route: 055
  4. SLO-PHYLLIN [Concomitant]
     Indication: ASTHMA
     Dosage: 120MG PER DAY
     Route: 055
  5. SALMETEROL [Concomitant]
     Indication: ASTHMA
     Dosage: 50MCG TWICE PER DAY
     Route: 065

REACTIONS (8)
  - ABDOMINAL PAIN UPPER [None]
  - ADRENAL INSUFFICIENCY [None]
  - BLOOD CORTISOL DECREASED [None]
  - FATIGUE [None]
  - GROWTH RETARDATION [None]
  - NAUSEA [None]
  - UPPER RESPIRATORY TRACT INFECTION [None]
  - VOMITING [None]
